FAERS Safety Report 5582919-1 (Version None)
Quarter: 2008Q1

REPORT INFORMATION
  Report Type: 
  Country: None (occurrence: None)
  Receive Date: 20080107
  Receipt Date: 20071227
  Transmission Date: 20080703
  Serious: Yes (Disabling, Other)
  Sender: FDA-Public Use
  Company Number: US-ROCHE-539306

PATIENT
  Age: 48 Year
  Sex: Male

DRUGS (2)
  1. PEGASYS [Suspect]
     Indication: HEPATITIS C
     Route: 065
     Dates: start: 20030105
  2. COPEGUS [Suspect]
     Indication: HEPATITIS C
     Dosage: DOSE FORM REPORTED AS PILLS
     Route: 048
     Dates: start: 20030105

REACTIONS (4)
  - BIPOLAR I DISORDER [None]
  - DEHYDRATION [None]
  - MENTAL IMPAIRMENT [None]
  - UNDERWEIGHT [None]
